FAERS Safety Report 8306094-5 (Version None)
Quarter: 2012Q1

REPORT INFORMATION
  Report Type: 
  Country: None (occurrence: None)
  Receive Date: 20120327
  Receipt Date: 20100410
  Transmission Date: 20120608
  Serious: Yes (Other)
  Sender: FDA-Public Use
  Company Number: PHEH2009US14776

PATIENT
  Age: 64 Year
  Sex: Female
  Weight: 74 kg

DRUGS (9)
  1. ARIMIDEX [Concomitant]
  2. ASCORBIC ACID [Concomitant]
  3. VITAMIN D [Concomitant]
  4. ASPIRIN [Concomitant]
  5. MULTI-VITAMINS [Concomitant]
  6. GLEEVEC [Suspect]
     Indication: CHRONIC MYELOID LEUKAEMIA
     Dosage: 400 MG, DAILY, ORAL200 MG, DAILY, ORAL 300 MG, QD, ORAL
     Route: 048
     Dates: start: 20090101
  7. GLEEVEC [Suspect]
     Indication: CHRONIC MYELOID LEUKAEMIA
     Dosage: 400 MG, DAILY, ORAL200 MG, DAILY, ORAL 300 MG, QD, ORAL
     Route: 048
     Dates: start: 20091101
  8. GLEEVEC [Suspect]
     Indication: CHRONIC MYELOID LEUKAEMIA
     Dosage: 400 MG, DAILY, ORAL200 MG, DAILY, ORAL 300 MG, QD, ORAL
     Route: 048
     Dates: start: 20090520, end: 20090909
  9. CALCIUM [Concomitant]

REACTIONS (4)
  - LEUKOPENIA [None]
  - GENE MUTATION IDENTIFICATION TEST POSITIVE [None]
  - ANAEMIA [None]
  - THROMBOCYTOPENIA [None]
